FAERS Safety Report 5618317-1 (Version None)
Quarter: 2008Q1

REPORT INFORMATION
  Report Type: 
  Country: None (occurrence: None)
  Receive Date: 20080114
  Receipt Date: 20070326
  Transmission Date: 20080703
  Serious: Yes (Hospitalization)
  Sender: FDA-Public Use
  Company Number: A03200702347

PATIENT
  Age: 82 Year
  Sex: Male

DRUGS (6)
  1. PLAVIX [Suspect]
     Indication: STENT PLACEMENT
     Dosage: 75 MG QD, ORAL
     Route: 048
     Dates: start: 20030125, end: 20030131
  2. ASPIRIN [Suspect]
     Indication: STENT PLACEMENT
     Dosage: 325 MG QD, ORAL
     Route: 048
     Dates: start: 20030125, end: 20030131
  3. ASPIRIN [Suspect]
     Indication: STENT PLACEMENT
     Dosage: ORAL
     Route: 048
  4. SIMVASTATIN [Concomitant]
  5. METOPOROLOL TARTRATE [Concomitant]
  6. ISOSORBIDE MONONITRATE [Concomitant]

REACTIONS (1)
  - CEREBRAL HAEMORRHAGE [None]
